FAERS Safety Report 5028288-7 (Version None)
Quarter: 2006Q2

REPORT INFORMATION
  Report Type: 
  Country: None (occurrence: None)
  Receive Date: 20060613
  Receipt Date: 20060531
  Transmission Date: 20061013
  Serious: Yes (Hospitalization)
  Sender: FDA-Public Use
  Company Number: 2006071308

PATIENT
  Age: 4 Year
  Sex: Male
  Weight: 15 kg

DRUGS (3)
  1. DOXORUBICIN HCL [Suspect]
     Indication: ILL-DEFINED DISORDER
     Dosage: 20 MG/M2 (INTERVAL: EVERY DAY), INTRAVENOUS
     Route: 042
     Dates: start: 20060124, end: 20060129
  2. CYCLOPHOSPHAMIDE [Suspect]
     Indication: ILL-DEFINED DISORDER
     Dosage: 300 MG/M2 (INTERVAL: EVERY DAY), INTRAVENOUS
     Route: 042
     Dates: start: 20060124, end: 20060129
  3. VINCRISTINE [Suspect]
     Indication: ILL-DEFINED DISORDER
     Dosage: 1.5 MG//M2 (INTERVAL: EVERY DAY), INTRAVENOUS
     Route: 042
     Dates: start: 20060124, end: 20060129

REACTIONS (7)
  - ABDOMINAL PAIN [None]
  - COMA [None]
  - DEPRESSED LEVEL OF CONSCIOUSNESS [None]
  - ENCEPHALITIS INFLUENZAL [None]
  - MENINGEAL DISORDER [None]
  - NERVOUS SYSTEM DISORDER [None]
  - NEUTROPENIA [None]
